FAERS Safety Report 18187895 (Version 1)
Quarter: 2020Q3

REPORT INFORMATION
  Report Type: Spontaneous
  Country: US (occurrence: US)
  Receive Date: 20200824
  Receipt Date: 20200824
  Transmission Date: 20201103
  Serious: No
  Sender: FDA-Public Use
  Company Number: US-009507513-2008USA005192

PATIENT
  Age: 85 Year
  Sex: Female

DRUGS (2)
  1. KEYTRUDA [Suspect]
     Active Substance: PEMBROLIZUMAB
     Indication: UTERINE CANCER
     Dosage: 400 MG EVERY 6 WEEKS (ROUTE:PORT)
     Route: 042
     Dates: start: 20200729
  2. KEYTRUDA [Suspect]
     Active Substance: PEMBROLIZUMAB
     Indication: ENDOMETRIAL CANCER
     Dosage: 400 MG EVERY 6 WEEKS (ROUTE:PORT)
     Route: 042
     Dates: start: 202005

REACTIONS (9)
  - Chest discomfort [Unknown]
  - Malaise [Unknown]
  - Fatigue [Recovering/Resolving]
  - Thyroid hormones decreased [Unknown]
  - Anaemia [Unknown]
  - Fatigue [Unknown]
  - Feeling abnormal [Unknown]
  - Muscle spasms [Unknown]
  - Lower respiratory tract congestion [Unknown]

NARRATIVE: CASE EVENT DATE: 20200621
